FAERS Safety Report 14368202 (Version 5)
Quarter: 2018Q2

REPORT INFORMATION
  Report Type: Spontaneous
  Country: US (occurrence: US)
  Receive Date: 20180109
  Receipt Date: 20180417
  Transmission Date: 20180711
  Serious: Yes (Other)
  Sender: FDA-Public Use
  Company Number: US-PFIZER INC-2018009592

PATIENT
  Age: 51 Year
  Sex: Female

DRUGS (1)
  1. XELJANZ XR [Suspect]
     Active Substance: TOFACITINIB CITRATE
     Dosage: 11 MG, UNK
     Dates: start: 201710, end: 20180320

REACTIONS (9)
  - Pneumonia [Unknown]
  - Bone cyst [Unknown]
  - Sinusitis [Unknown]
  - Malaise [Unknown]
  - Fungal infection [Unknown]
  - Foot deformity [Unknown]
  - Infected cyst [Unknown]
  - Localised infection [Unknown]
  - Asthma [Unknown]

NARRATIVE: CASE EVENT DATE: 201801
